FAERS Safety Report 12496544 (Version 1)
Quarter: 2016Q2

REPORT INFORMATION
  Report Type: Spontaneous
  Country: FR (occurrence: FR)
  Receive Date: 20160624
  Receipt Date: 20160624
  Transmission Date: 20160815
  Serious: Yes (Hospitalization)
  Sender: FDA-Public Use
  Company Number: FR-MALLINCKRODT-T201602630

PATIENT
  Age: 77 Year
  Sex: Female

DRUGS (6)
  1. OCTREOSCAN [Suspect]
     Active Substance: INDIUM IN-111 CHLORIDE\INDIUM IN-111 PENTETREOTIDE\PENTETREOTIDE
     Indication: IMAGING PROCEDURE
     Dosage: 15540 MBQ, UNK
     Route: 048
     Dates: start: 200411, end: 200501
  2. LU(177)-DOTATOC [Suspect]
     Active Substance: EDOTREOTIDE\LUTETIUM LU-177
     Indication: METASTASIS
     Dosage: 20 GY, 5 SEQUENCES
     Route: 065
     Dates: start: 2003
  3. SANDOSTATIN [Suspect]
     Active Substance: OCTREOTIDE ACETATE
     Indication: METASTASIS
     Dosage: UNK
     Route: 065
     Dates: start: 2006
  4. LU(177)-DOTATOC [Suspect]
     Active Substance: EDOTREOTIDE\LUTETIUM LU-177
     Dosage: 29.6 GBQ, UNK
     Route: 065
     Dates: start: 2007
  5. LU(177)-DOTATOC [Suspect]
     Active Substance: EDOTREOTIDE\LUTETIUM LU-177
     Dosage: 5550 MBQ, UNK
     Route: 065
     Dates: start: 2014
  6. LU(177)-DOTATOC [Suspect]
     Active Substance: EDOTREOTIDE\LUTETIUM LU-177
     Dosage: UNK
     Route: 065
     Dates: start: 2006

REACTIONS (1)
  - Myelodysplastic syndrome [Recovering/Resolving]

NARRATIVE: CASE EVENT DATE: 20160125
